FAERS Safety Report 19609103 (Version 1)
Quarter: 2021Q3

REPORT INFORMATION
  Report Type: Spontaneous
  Country: US (occurrence: US)
  Receive Date: 20210725
  Receipt Date: 20210725
  Transmission Date: 20211014
  Serious: Yes (Disabling)
  Sender: FDA-Public Use
  Company Number: None

PATIENT
  Age: 30 Year
  Sex: Female
  Weight: 83.25 kg

DRUGS (1)
  1. XULANE [Suspect]
     Active Substance: ETHINYL ESTRADIOL\NORELGESTROMIN
     Indication: CONTRACEPTION
     Dosage: ?          QUANTITY:1 PATCH(ES);OTHER FREQUENCY:NEW PATCH WEEKLY;?
     Route: 061
     Dates: start: 20210625, end: 20210717

REACTIONS (3)
  - Nausea [None]
  - Gastrooesophageal reflux disease [None]
  - Hepatic enzyme increased [None]

NARRATIVE: CASE EVENT DATE: 20210716
